FAERS Safety Report 12643435 (Version 1)
Quarter: 2016Q3

REPORT INFORMATION
  Report Type: Spontaneous
  Country: US (occurrence: US)
  Receive Date: 20160811
  Receipt Date: 20160811
  Transmission Date: 20161109
  Serious: No
  Sender: FDA-Public Use
  Company Number: US-BEH-2016072094

PATIENT
  Sex: Male
  Weight: 65.76 kg

DRUGS (15)
  1. OMEPRAZOLE. [Concomitant]
     Active Substance: OMEPRAZOLE
  2. RANITIDINE. [Concomitant]
     Active Substance: RANITIDINE
  3. AZELASTINE [Concomitant]
     Active Substance: AZELASTINE
  4. EPIPEN [Concomitant]
     Active Substance: EPINEPHRINE
  5. DOVONEX [Concomitant]
     Active Substance: CALCIPOTRIENE
  6. ACETAMINOPHEN. [Concomitant]
     Active Substance: ACETAMINOPHEN
  7. ELIDEL [Concomitant]
     Active Substance: PIMECROLIMUS
  8. DYMISTA [Concomitant]
     Active Substance: AZELASTINE HYDROCHLORIDE\FLUTICASONE PROPIONATE
  9. SUDAFED [Concomitant]
     Active Substance: PSEUDOEPHEDRINE HYDROCHLORIDE
  10. HIZENTRA [Suspect]
     Active Substance: HUMAN IMMUNOGLOBULIN G
     Indication: COMBINED IMMUNODEFICIENCY
     Dosage: 2 G, EVERY 2 DAYS
     Route: 058
     Dates: start: 20120829
  11. FLUTICASONE [Concomitant]
     Active Substance: FLUTICASONE\FLUTICASONE PROPIONATE
  12. VITAMIN B12 [Concomitant]
     Active Substance: CYANOCOBALAMIN
  13. PREDNISONE. [Concomitant]
     Active Substance: PREDNISONE
  14. NASAL CARE RINSE [Concomitant]
  15. DIPHENHYDRAMINE. [Concomitant]
     Active Substance: DIPHENHYDRAMINE

REACTIONS (3)
  - Pain [Unknown]
  - Nasopharyngitis [Unknown]
  - Pyrexia [Unknown]
